FAERS Safety Report 12598689 (Version 1)
Quarter: 2016Q3

REPORT INFORMATION
  Report Type: Spontaneous
  Country: FR (occurrence: FR)
  Receive Date: 20160726
  Receipt Date: 20160726
  Transmission Date: 20161109
  Serious: Yes (Other)
  Sender: FDA-Public Use
  Company Number: FR-MYLANLABS-2014M1007227

PATIENT

DRUGS (3)
  1. PANTOPRAZOLE MYLAN [Suspect]
     Active Substance: PANTOPRAZOLE SODIUM
     Indication: PRODUCT USED FOR UNKNOWN INDICATION
     Dosage: 1 DF, QD
     Route: 048
     Dates: start: 20141008, end: 20141009
  2. DOLIPRANE [Concomitant]
     Active Substance: ACETAMINOPHEN
     Indication: SCIATICA
     Dosage: 3 DF, QD
     Route: 048
     Dates: start: 20141008, end: 20141009
  3. NAPROXENE                          /00256201/ [Suspect]
     Active Substance: NAPROXEN
     Indication: SCIATICA
     Dosage: 2 DF, QD
     Route: 048
     Dates: start: 20141008, end: 20141009

REACTIONS (4)
  - Dermatitis exfoliative [Unknown]
  - Vomiting [Unknown]
  - Erythema [Unknown]
  - Pruritus [Recovered/Resolved]

NARRATIVE: CASE EVENT DATE: 20141008
